FAERS Safety Report 21370609 (Version 1)
Quarter: 2022Q3

REPORT INFORMATION
  Report Type: Spontaneous
  Country: AU (occurrence: AU)
  Receive Date: 20220923
  Receipt Date: 20220923
  Transmission Date: 20221027
  Serious: Yes (Other)
  Sender: FDA-Public Use
  Company Number: AU-GLAXOSMITHKLINE-AU2022APC135866

PATIENT

DRUGS (1)
  1. SOTROVIMAB [Suspect]
     Active Substance: SOTROVIMAB
     Indication: COVID-19
     Dosage: 500 MG
     Route: 042
     Dates: start: 20220129

REACTIONS (5)
  - Chest pain [Recovering/Resolving]
  - Arthralgia [Recovering/Resolving]
  - Cough [Unknown]
  - Pain [Unknown]
  - Muscle strain [Unknown]

NARRATIVE: CASE EVENT DATE: 20220129
